FAERS Safety Report 4372972-5 (Version None)
Quarter: 2004Q2

REPORT INFORMATION
  Report Type: 
  Country: None (occurrence: None)
  Receive Date: 20040603
  Receipt Date: 20040429
  Transmission Date: 20050107
  Serious: Yes (Hospitalization)
  Sender: FDA-Public Use
  Company Number: F01200400920

PATIENT
  Age: 59 Year
  Sex: Male

DRUGS (4)
  1. OXALIPLATIN - SOLUTION - 130 MG/M2 [Suspect]
     Indication: OESOPHAGEAL CARCINOMA
     Dosage: 130 MG/M2 Q3W INTRAVENOUS NOS
     Route: 042
     Dates: start: 20040316, end: 20040316
  2. CAPECITABINE - TABLET - 850 MG/M2 [Suspect]
     Dosage: 850 MG/M2 TWICE A DAY FROM D1 TO D14 Q3W ORAL
     Route: 048
     Dates: start: 20040316
  3. MORPHINE [Concomitant]
  4. XANAX [Concomitant]

REACTIONS (13)
  - BACTERIA STOOL IDENTIFIED [None]
  - BLOOD CULTURE POSITIVE [None]
  - CLOSTRIDIAL INFECTION [None]
  - CONFUSIONAL STATE [None]
  - DEEP VEIN THROMBOSIS [None]
  - DEHYDRATION [None]
  - DIARRHOEA [None]
  - GASTROOESOPHAGEAL REFLUX DISEASE [None]
  - INFECTION [None]
  - NAUSEA [None]
  - STAPHYLOCOCCAL INFECTION [None]
  - THROMBOSIS [None]
  - VOMITING [None]
